FAERS Safety Report 22031853 (Version 1)
Quarter: 2023Q1

REPORT INFORMATION
  Report Type: Spontaneous
  Country: DE (occurrence: DE)
  Receive Date: 20230224
  Receipt Date: 20230224
  Transmission Date: 20230417
  Serious: Yes (Congenital Anomaly, Other)
  Sender: FDA-Public Use
  Company Number: DE-EMBRYOTOX-202102832

PATIENT
  Sex: Female
  Weight: .43 kg

DRUGS (5)
  1. SERTRALINE [Suspect]
     Active Substance: SERTRALINE HYDROCHLORIDE
     Indication: Foetal exposure during pregnancy
     Dosage: (MATERNAL DOSE: 75 [MG/D (BIS 50 MG/D)])
     Route: 064
  2. BUSPIRONE [Suspect]
     Active Substance: BUSPIRONE HYDROCHLORIDE
     Indication: Foetal exposure during pregnancy
     Dosage: (MATERNAL DOSE: 20 MG, QD)
     Route: 064
  3. RISPERIDONE [Suspect]
     Active Substance: RISPERIDONE
     Indication: Foetal exposure during pregnancy
     Dosage: (MATERNAL DOSE: 1 MG, QD)
     Route: 064
  4. CLINDAMYCIN [Concomitant]
     Active Substance: CLINDAMYCIN
     Indication: Foetal exposure during pregnancy
     Dosage: (MATERNAL DOSE: UNK)
     Route: 064
  5. FLUTICASONE FUROATE\VILANTEROL TRIFENATATE [Concomitant]
     Active Substance: FLUTICASONE FUROATE\VILANTEROL TRIFENATATE
     Indication: Foetal exposure during pregnancy
     Dosage: (MATERNAL DOSE: SELDOM)
     Route: 064

REACTIONS (4)
  - Syndactyly [Unknown]
  - Cleft lip and palate [Unknown]
  - Exophthalmos [Unknown]
  - Foetal exposure during pregnancy [Unknown]
